FAERS Safety Report 8198954-3 (Version None)
Quarter: 2012Q1

REPORT INFORMATION
  Report Type: 
  Country: None (occurrence: None)
  Receive Date: 20120309
  Receipt Date: 20120301
  Transmission Date: 20120608
  Serious: Yes (Other)
  Sender: FDA-Public Use
  Company Number: JP-AMGEN-JPNCT2012015220

PATIENT
  Age: 40 Year
  Sex: Male

DRUGS (13)
  1. HIRUDOID [Concomitant]
     Dosage: UNK
     Route: 062
  2. LEVOLEUCOVORIN CALCIUM [Concomitant]
     Indication: COLORECTAL CANCER
     Route: 041
     Dates: start: 20101005, end: 20110104
  3. IRINOTECAN HCL [Concomitant]
     Indication: COLORECTAL CANCER
     Route: 041
     Dates: start: 20101005, end: 20110104
  4. FLUOROURACIL [Concomitant]
     Indication: COLORECTAL CANCER
     Route: 040
     Dates: start: 20101005, end: 20110104
  5. PYDOXAL [Concomitant]
     Dosage: UNK
     Route: 048
  6. SULFUR CAMPHOR MARUISHI [Concomitant]
     Dosage: UNK
     Route: 062
  7. MINOCYCLINE HCL [Concomitant]
     Route: 048
  8. FLUOROURACIL [Concomitant]
     Route: 041
     Dates: start: 20101005, end: 20110104
  9. PANITUMUMAB [Suspect]
     Indication: COLORECTAL CANCER
     Dosage: 6 MG/KG, Q2WK
     Dates: start: 20101005, end: 20101019
  10. PANITUMUMAB [Suspect]
     Dosage: 6 MG/KG, Q2WK
     Dates: start: 20101130, end: 20101130
  11. MOTILIUM [Concomitant]
     Dosage: UNK
     Route: 048
  12. LOCOID [Concomitant]
     Dosage: UNK
     Route: 062
  13. CORTICOSTEROIDS [Concomitant]
     Indication: PROPHYLAXIS
     Route: 065

REACTIONS (5)
  - NEUTROPHIL COUNT DECREASED [None]
  - ECZEMA ASTEATOTIC [None]
  - STOMATITIS [None]
  - DECREASED APPETITE [None]
  - ECZEMA [None]
